FAERS Safety Report 5885667-3 (Version None)
Quarter: 2008Q3

REPORT INFORMATION
  Report Type: 
  Country: None (occurrence: None)
  Receive Date: 20080912
  Receipt Date: 20080905
  Transmission Date: 20090109
  Serious: Yes (Hospitalization)
  Sender: FDA-Public Use
  Company Number: 2008JP004040

PATIENT
  Age: 88 Year
  Sex: Female

DRUGS (3)
  1. VESICARE [Suspect]
     Dosage: 5 MG, UNKNOWN/D,ORAL
     Route: 048
     Dates: start: 20070101, end: 20080901
  2. NORVASC [Concomitant]
  3. METHYCOBAL (MECOBALAMIN) [Concomitant]

REACTIONS (2)
  - CEREBRAL INFARCTION [None]
  - SOMNOLENCE [None]
